FAERS Safety Report 8166525-0 (Version None)
Quarter: 2012Q1

REPORT INFORMATION
  Report Type: 
  Country: None (occurrence: None)
  Receive Date: 20120227
  Receipt Date: 20120216
  Transmission Date: 20120608
  Serious: Yes (Death)
  Sender: FDA-Public Use
  Company Number: US-BAYER-201024496NA

PATIENT
  Sex: Female
  Weight: 93.424 kg

DRUGS (11)
  1. HUMULIN N [Concomitant]
  2. MONOPRIL [Concomitant]
  3. SIMVASTATIN [Concomitant]
  4. COREG [Concomitant]
  5. MAGNEVIST [Suspect]
     Indication: NUCLEAR MAGNETIC RESONANCE IMAGING
  6. SULAR [Concomitant]
  7. OMNISCAN [Suspect]
     Indication: NUCLEAR MAGNETIC RESONANCE IMAGING
  8. ASPIRIN [Concomitant]
  9. DARVOCET [Concomitant]
  10. RENAGEL [Concomitant]
  11. OPTIMARK [Suspect]
     Indication: NUCLEAR MAGNETIC RESONANCE IMAGING

REACTIONS (15)
  - SKIN FIBROSIS [None]
  - SWELLING [None]
  - ERYTHEMA [None]
  - LACERATION [None]
  - NEPHROGENIC SYSTEMIC FIBROSIS [None]
  - SKIN TIGHTNESS [None]
  - OEDEMA [None]
  - PAIN [None]
  - SKIN DISORDER [None]
  - ARTHRALGIA [None]
  - SKIN HYPERTROPHY [None]
  - MOBILITY DECREASED [None]
  - MUSCULOSKELETAL STIFFNESS [None]
  - MUSCULAR WEAKNESS [None]
  - SKIN INDURATION [None]
